FAERS Safety Report 5057100-5 (Version None)
Quarter: 2006Q2

REPORT INFORMATION
  Report Type: 
  Country: None (occurrence: None)
  Receive Date: 20060622
  Receipt Date: 20050718
  Transmission Date: 20061013
  Serious: Yes (Hospitalization, Other)
  Sender: FDA-Public Use
  Company Number: US-JNJFOC-20050500870

PATIENT
  Sex: Female

DRUGS (2)
  1. FENTANYL [Suspect]
     Indication: INTENTIONAL DRUG MISUSE
     Dosage: ORAL
     Route: 048
     Dates: start: 20050324, end: 20050324
  2. PROPOXYPHENE HCL [Suspect]
     Indication: INTENTIONAL DRUG MISUSE
     Dates: start: 20050324, end: 20050324

REACTIONS (2)
  - DRUG ABUSER [None]
  - OVERDOSE [None]
